FAERS Safety Report 5255156-8 (Version None)
Quarter: 2007Q1

REPORT INFORMATION
  Report Type: 
  Country: None (occurrence: None)
  Receive Date: 20070305
  Receipt Date: 20070223
  Transmission Date: 20070707
  Serious: Yes (Other)
  Sender: FDA-Public Use
  Company Number: NO-AVENTIS-200711556GDDC

PATIENT
  Age: 81 Year
  Sex: Female

DRUGS (5)
  1. GLIMEPIRIDE [Suspect]
     Route: 048
  2. CALCIUM CHANNEL BLOCKERS [Suspect]
     Dosage: DOSE: UNK
  3. HYDROCHLOROTHIAZIDE [Suspect]
     Dosage: DOSE: UNK
  4. LISINOPRIL [Suspect]
  5. METFORMIN [Suspect]

REACTIONS (2)
  - LACTIC ACIDOSIS [None]
  - RENAL FAILURE ACUTE [None]
